FAERS Safety Report 10247688 (Version 1)
Quarter: 2014Q2

REPORT INFORMATION
  Report Type: Spontaneous
  Country: SE (occurrence: SE)
  Receive Date: 20140619
  Receipt Date: 20140619
  Transmission Date: 20141212
  Serious: Yes (Other)
  Sender: FDA-Public Use
  Company Number: SE-PFIZER INC-2014167316

PATIENT
  Age: 58 Year
  Sex: Male

DRUGS (3)
  1. CORDARONE [Suspect]
     Dosage: UNK
     Route: 065
     Dates: end: 201405
  2. PRADAXA [Concomitant]
     Dosage: UNK
  3. METOPROLOL [Concomitant]
     Dosage: UNK

REACTIONS (7)
  - Malaise [Unknown]
  - Fatigue [Unknown]
  - Gait disturbance [Unknown]
  - Visual impairment [Unknown]
  - Loss of consciousness [Unknown]
  - Nausea [Unknown]
  - Headache [Unknown]
